FAERS Safety Report 8167634-2 (Version None)
Quarter: 2012Q1

REPORT INFORMATION
  Report Type: 
  Country: None (occurrence: None)
  Receive Date: 20120103
  Receipt Date: 20111007
  Transmission Date: 20120608
  Serious: No
  Sender: FDA-Public Use
  Company Number: AE-2011-002143

PATIENT
  Age: 54 Year
  Sex: Male
  Weight: 85.2762 kg

DRUGS (6)
  1. PEGASYS [Concomitant]
  2. LISINOPRIL [Concomitant]
  3. RISPERDAL [Concomitant]
  4. INCIVEK [Suspect]
     Dosage: 2250 MG (750 MG,1 IN 8 HR)
     Dates: start: 20110819
  5. RIBAVIRIN [Concomitant]
  6. HYDROCHLOROTHIAZIDE [Concomitant]

REACTIONS (4)
  - GINGIVAL SWELLING [None]
  - SKIN DISORDER [None]
  - TUBERCULOSIS [None]
  - SKIN DISCOLOURATION [None]
